APPROVED DRUG PRODUCT: DACTINOMYCIN
Active Ingredient: DACTINOMYCIN
Strength: 0.5MG/VIAL
Dosage Form/Route: INJECTABLE;INJECTION
Application: A203999 | Product #001 | TE Code: AP
Applicant: XGEN PHARMACEUTICALS DJB INC
Approved: May 20, 2019 | RLD: No | RS: No | Type: RX